FAERS Safety Report 8493757-4 (Version None)
Quarter: 2012Q3

REPORT INFORMATION
  Report Type: 
  Country: None (occurrence: None)
  Receive Date: 20120706
  Receipt Date: 20120621
  Transmission Date: 20120928
  Serious: No
  Sender: FDA-Public Use
  Company Number: US-ASTRAZENECA-2012SE41719

PATIENT
  Sex: Male
  Weight: 81.6 kg

DRUGS (9)
  1. CARBAMAZEPINE [Concomitant]
  2. SIMVASTATIN [Concomitant]
  3. NEXIUM [Suspect]
     Indication: BARRETT'S OESOPHAGUS
     Route: 048
  4. LEVOTHYROXINE SODIUM [Concomitant]
     Indication: THYROID DISORDER
  5. CALCIUM CARBONATE [Concomitant]
  6. GEMFIBROZIL [Concomitant]
  7. PHENYTOIN [Concomitant]
  8. OMEPRAZOLE [Suspect]
     Route: 048
  9. GABAPENTIN [Concomitant]

REACTIONS (5)
  - OFF LABEL USE [None]
  - INTENTIONAL DRUG MISUSE [None]
  - DYSPEPSIA [None]
  - BLOOD CALCIUM ABNORMAL [None]
  - DRUG INEFFECTIVE [None]
